FAERS Safety Report 7406903-8 (Version None)
Quarter: 2011Q2

REPORT INFORMATION
  Report Type: 
  Country: None (occurrence: None)
  Receive Date: 20110411
  Receipt Date: 20110407
  Transmission Date: 20111010
  Serious: Yes (Other)
  Sender: FDA-Public Use
  Company Number: IT-ASTRAZENECA-2011SE19648

PATIENT
  Sex: Female

DRUGS (4)
  1. LASITONE (FUROSEMIDE / SPIRONOLACTONE) [Concomitant]
     Dosage: 25 MG + 37 MG CAPSULES (20 CAPSULES BLISTER)
     Route: 048
     Dates: start: 20100221, end: 20110220
  2. OLPREZIDE (OLMESARTAN MEDOXOMIL / HYDROCHLOROTHIAZIDE) [Concomitant]
     Dosage: 20/25 MG FILM-COATED TABLETS
     Route: 048
     Dates: start: 20100221, end: 20110220
  3. FELODAY (FELOPIDINE) [Suspect]
     Route: 048
     Dates: start: 20100221, end: 20110220
  4. CATAPRESAN (CLONIDINA) [Suspect]
     Route: 062
     Dates: start: 20100221, end: 20110220

REACTIONS (1)
  - BRADYCARDIA [None]
